FAERS Safety Report 5857363-X (Version None)
Quarter: 2008Q3

REPORT INFORMATION
  Report Type: 
  Country: None (occurrence: None)
  Receive Date: 20080826
  Receipt Date: 20080815
  Transmission Date: 20090109
  Serious: Yes (Other)
  Sender: FDA-Public Use
  Company Number: US-JNJFOC-20080606875

PATIENT
  Sex: Female
  Weight: 106.6 kg

DRUGS (9)
  1. DURAGESIC-100 [Suspect]
     Route: 062
  2. DURAGESIC-100 [Suspect]
     Route: 062
  3. DURAGESIC-100 [Suspect]
     Indication: BACK PAIN
     Route: 062
  4. CORTISONE [Suspect]
     Indication: INFLAMMATION
     Route: 030
  5. LYRICA [Suspect]
     Indication: FIBROMYALGIA
     Route: 048
  6. LORTAB [Concomitant]
     Indication: BREAKTHROUGH PAIN
     Route: 048
  7. FLONASE [Concomitant]
     Indication: SEASONAL ALLERGY
     Dosage: 2 SPRAYS IN EACH NOSTRIL DAILY
     Route: 045
  8. BENADRYL [Concomitant]
     Indication: SEASONAL ALLERGY
     Dosage: TWO 25 MG CAPSULES TAKEN
     Route: 048
  9. XANAX [Concomitant]
     Indication: ANXIETY
     Route: 048

REACTIONS (13)
  - APPLICATION SITE BLEEDING [None]
  - APPLICATION SITE REACTION [None]
  - ARTHRALGIA [None]
  - CARPAL TUNNEL SYNDROME [None]
  - CONSTIPATION [None]
  - DEPRESSION [None]
  - DYSPHONIA [None]
  - FIBROMYALGIA [None]
  - GASTROOESOPHAGEAL REFLUX DISEASE [None]
  - RHEUMATOID ARTHRITIS [None]
  - SINUS DISORDER [None]
  - WEIGHT INCREASED [None]
  - WRONG TECHNIQUE IN DRUG USAGE PROCESS [None]
